FAERS Safety Report 15962555 (Version 2)
Quarter: 2019Q1

REPORT INFORMATION
  Report Type: Report from Study
  Country: DE (occurrence: DE)
  Receive Date: 20190214
  Receipt Date: 20190305
  Transmission Date: 20190417
  Serious: Yes (Other)
  Sender: FDA-Public Use
  Company Number: DE-PFIZER INC-2019063647

PATIENT
  Age: 40 Year
  Sex: Male
  Weight: 93 kg

DRUGS (10)
  1. DEXAMETHASON JENAPHARM [Concomitant]
     Active Substance: DEXAMETHASONE
     Indication: NAUSEA
     Dosage: 4 MG, PER CYCLE
     Route: 042
     Dates: start: 20181213
  2. ATROPINSULFAT [Concomitant]
     Indication: DIARRHOEA
     Dosage: 1 UNK, PER CYCLE
     Route: 058
     Dates: start: 20181213, end: 20190103
  3. PANITUMUMAB [Suspect]
     Active Substance: PANITUMUMAB
     Indication: COLORECTAL CANCER METASTATIC
     Dosage: 560 MG, UNK
     Route: 042
     Dates: start: 20181213
  4. CALCIUM FOLINATE [Suspect]
     Active Substance: LEUCOVORIN CALCIUM
     Indication: COLORECTAL CANCER METASTATIC
     Dosage: 860 MG, UNK
     Route: 065
     Dates: start: 20181213
  5. IRINOTECAN HCL [Suspect]
     Active Substance: IRINOTECAN HYDROCHLORIDE
     Indication: COLORECTAL CANCER METASTATIC
     Dosage: 390 MG, UNK
     Route: 065
     Dates: start: 20181213
  6. FLUOROURACIL. [Suspect]
     Active Substance: FLUOROURACIL
     Indication: COLORECTAL CANCER METASTATIC
     Dosage: 860 MG, UNK
     Route: 040
     Dates: start: 20181213
  7. KALINOR [Concomitant]
     Indication: ANAEMIA
     Dosage: 1 UNK, QD
     Route: 048
     Dates: start: 20181213
  8. AKYNZEO [Concomitant]
     Active Substance: NETUPITANT\PALONOSETRON HYDROCHLORIDE
     Indication: NAUSEA
     Dosage: 300 MG, PER CYCLE
     Route: 048
     Dates: start: 20181213
  9. FLUOROURACIL. [Suspect]
     Active Substance: FLUOROURACIL
     Dosage: 5200 UNK, UNK
     Route: 042
     Dates: start: 20181213
  10. DOXYCYCLIN-RATIOPHARM [Concomitant]
     Indication: RASH
     Dosage: 100 MG, BID
     Route: 048
     Dates: start: 20181213

REACTIONS (1)
  - Hypokalaemia [Recovered/Resolved]

NARRATIVE: CASE EVENT DATE: 20190117
